FAERS Safety Report 20468985 (Version 1)
Quarter: 2022Q1

REPORT INFORMATION
  Report Type: Spontaneous
  Country: CN (occurrence: CN)
  Receive Date: 20220214
  Receipt Date: 20220214
  Transmission Date: 20220423
  Serious: Yes (Death, Other)
  Sender: FDA-Public Use
  Company Number: CN-GLAXOSMITHKLINE-CN2022APC023109

PATIENT
  Age: 42 Year
  Sex: Male
  Weight: 65 kg

DRUGS (8)
  1. UMECLIDINIUM BROMIDE\VILANTEROL TRIFENATATE [Suspect]
     Active Substance: UMECLIDINIUM BROMIDE\VILANTEROL TRIFENATATE
     Indication: Asthma
     Dosage: 1 PUFF(S), QD
     Route: 055
     Dates: start: 20211025, end: 20220112
  2. DOXOFYLLINE [Suspect]
     Active Substance: DOXOFYLLINE
     Indication: Asthma
     Dosage: 0.3 G, QD
     Route: 041
     Dates: start: 20220113, end: 20220113
  3. EPINEPHRINE HYDROCHLORIDE [Suspect]
     Active Substance: EPINEPHRINE HYDROCHLORIDE
     Indication: Dyspnoea
     Dosage: 0.5 MG, QD
     Route: 030
     Dates: start: 20220113, end: 20220113
  4. DEXAMETHASONE SODIUM PHOSPHATE [Concomitant]
     Active Substance: DEXAMETHASONE SODIUM PHOSPHATE
     Indication: Asthma
     Dosage: 5 MG, QD
     Route: 041
     Dates: start: 20220113, end: 20220113
  5. SODIUM CHLORIDE [Concomitant]
     Active Substance: SODIUM CHLORIDE
     Indication: Product used for unknown indication
     Dosage: 100 ML, QD
     Dates: start: 20220113, end: 20220113
  6. PROMETHAZINE [Concomitant]
     Active Substance: PROMETHAZINE HYDROCHLORIDE
     Indication: Bronchospasm
     Dosage: 25 MG, QD
     Route: 030
     Dates: start: 20220113, end: 20220113
  7. ASCORBIC ACID [Concomitant]
     Active Substance: ASCORBIC ACID
     Indication: Vitamin supplementation
     Dosage: 2 G, QD
     Route: 042
     Dates: start: 20220113, end: 20220113
  8. DEXTROSE [Concomitant]
     Active Substance: DEXTROSE
     Indication: Product used for unknown indication
     Dosage: 100 ML, QD
     Dates: start: 20220113, end: 20220113

REACTIONS (15)
  - Arrhythmia [Fatal]
  - Loss of consciousness [Unknown]
  - Dyspnoea [Unknown]
  - Dry mouth [Unknown]
  - Dysgeusia [Unknown]
  - Chest discomfort [Unknown]
  - Asthma [Unknown]
  - Heart rate increased [Unknown]
  - Productive cough [Unknown]
  - Contraindicated product administered [Unknown]
  - Cyanosis [Unknown]
  - Respiratory rate decreased [Unknown]
  - Mydriasis [Unknown]
  - Pharyngeal erythema [Unknown]
  - Pulse absent [Unknown]

NARRATIVE: CASE EVENT DATE: 20211213
